FAERS Safety Report 4988111-3 (Version None)
Quarter: 2006Q2

REPORT INFORMATION
  Report Type: 
  Country: None (occurrence: None)
  Receive Date: 20060501
  Receipt Date: 20050408
  Transmission Date: 20061013
  Serious: Yes (Hospitalization, Disabling, Other)
  Sender: FDA-Public Use
  Company Number: US-MERCK-0504USA01291

PATIENT
  Age: 35 Year
  Sex: Male
  Weight: 100 kg

DRUGS (8)
  1. VIOXX [Suspect]
     Indication: RHEUMATOID ARTHRITIS
     Route: 048
     Dates: start: 20010208, end: 20040901
  2. VIOXX [Suspect]
     Route: 065
  3. ARAVA [Concomitant]
     Route: 065
  4. TYLENOL (CAPLET) [Concomitant]
     Route: 065
  5. METHOTREXATE [Concomitant]
     Route: 058
  6. BENADRYL [Concomitant]
     Route: 065
  7. PREDNISONE [Concomitant]
     Route: 065
  8. FOLIC ACID [Concomitant]
     Route: 065

REACTIONS (14)
  - BLOOD PRESSURE INCREASED [None]
  - BRAIN OEDEMA [None]
  - CEREBROVASCULAR ACCIDENT [None]
  - CHEST PAIN [None]
  - COUGH [None]
  - HEMIANOPIA [None]
  - HYPERTRIGLYCERIDAEMIA [None]
  - JOINT SWELLING [None]
  - MEDICATION ERROR [None]
  - MYOCARDIAL INFARCTION [None]
  - PAIN [None]
  - TACHYCARDIA [None]
  - UPPER RESPIRATORY TRACT CONGESTION [None]
  - VISUAL ACUITY REDUCED [None]
